FAERS Safety Report 24595645 (Version 1)
Quarter: 2024Q4

REPORT INFORMATION
  Report Type: Report from Study
  Country: US (occurrence: US)
  Receive Date: 20241109
  Receipt Date: 20241109
  Transmission Date: 20250115
  Serious: Yes (Other)
  Sender: ALEXION PHARMACEUTICALS
  Company Number: US-AstraZeneca-CH-00724902A

PATIENT

DRUGS (4)
  1. OSIMERTINIB [Suspect]
     Active Substance: OSIMERTINIB
     Dosage: DOSE UNKNOWN
  2. OSIMERTINIB [Suspect]
     Active Substance: OSIMERTINIB
     Dosage: DOSE UNKNOWN
  3. OSIMERTINIB [Suspect]
     Active Substance: OSIMERTINIB
     Dosage: DOSE UNKNOWN
  4. OSIMERTINIB [Suspect]
     Active Substance: OSIMERTINIB
     Dosage: DOSE UNKNOWN

REACTIONS (3)
  - Myelosuppression [Unknown]
  - Haemoglobin abnormal [Unknown]
  - Haematocrit decreased [Unknown]
